FAERS Safety Report 8449967-5 (Version None)
Quarter: 2012Q2

REPORT INFORMATION
  Report Type: 
  Country: None (occurrence: None)
  Receive Date: 20120614
  Receipt Date: 20120614
  Transmission Date: 20120825
  Serious: No
  Sender: FDA-Public Use
  Company Number: None

PATIENT
  Age: 68 Year
  Sex: Female

DRUGS (2)
  1. VELCADE [Concomitant]
  2. VELCADE [Suspect]
     Indication: MULTIPLE MYELOMA
     Dosage: SQ

REACTIONS (2)
  - LABORATORY TEST ABNORMAL [None]
  - DRUG INEFFECTIVE [None]
